APPROVED DRUG PRODUCT: DESIPRAMINE HYDROCHLORIDE
Active Ingredient: DESIPRAMINE HYDROCHLORIDE
Strength: 100MG
Dosage Form/Route: TABLET;ORAL
Application: A071766 | Product #001 | TE Code: AB
Applicant: ACTAVIS TOTOWA LLC
Approved: Oct 5, 1987 | RLD: No | RS: No | Type: RX